FAERS Safety Report 6263967-5 (Version None)
Quarter: 2009Q3

REPORT INFORMATION
  Report Type: 
  Country: None (occurrence: None)
  Receive Date: 20090710
  Receipt Date: 20090630
  Transmission Date: 20100115
  Serious: Yes (Hospitalization)
  Sender: FDA-Public Use
  Company Number: US-AVENTIS-200915912US

PATIENT
  Weight: 2.7 kg

DRUGS (3)
  1. LOVENOX [Suspect]
     Dosage: DOSE: UNK
     Route: 065
  2. LOVENOX [Suspect]
     Indication: PROTEIN S DEFICIENCY
     Dosage: DOSE: UNK
     Route: 065
  3. LOVENOX [Suspect]
     Dosage: DOSE: UNK
     Route: 065

REACTIONS (3)
  - ACCIDENTAL EXPOSURE [None]
  - DYSPNOEA [None]
  - NEONATAL ASPIRATION [None]
